FAERS Safety Report 24385024 (Version 1)
Quarter: 2024Q4

REPORT INFORMATION
  Report Type: Spontaneous
  Country: UY (occurrence: UY)
  Receive Date: 20241001
  Receipt Date: 20241001
  Transmission Date: 20250115
  Serious: Yes (Other)
  Sender: ABBVIE
  Company Number: UY-ABBVIE-5943611

PATIENT
  Sex: Female

DRUGS (1)
  1. UPADACITINIB [Suspect]
     Active Substance: UPADACITINIB
     Indication: Rheumatoid arthritis
     Route: 050

REACTIONS (5)
  - Hypertension [Unknown]
  - Vomiting [Unknown]
  - Nausea [Unknown]
  - Dizziness [Unknown]
  - Chest pain [Unknown]
